FAERS Safety Report 4537581-3 (Version None)
Quarter: 2004Q4

REPORT INFORMATION
  Report Type: 
  Country: None (occurrence: None)
  Receive Date: 20041221
  Receipt Date: 20041103
  Transmission Date: 20050328
  Serious: No
  Sender: FDA-Public Use
  Company Number: A-US2004-07973

PATIENT
  Age: 66 Year
  Sex: Female

DRUGS (8)
  1. TRACLEER [Suspect]
     Indication: PULMONARY HYPERTENSION
     Dosage: 125 MG, BID, ORAL
     Route: 048
     Dates: start: 20040401
  2. LASIX [Concomitant]
  3. BEXTRA [Concomitant]
  4. ESTRATEST (ESTROGNES ESTERRIFIED, MEHTYLTESTESTERONE) [Concomitant]
  5. PREACID (LANSOPRAZOLE) [Concomitant]
  6. PROCARDIA [Concomitant]
  7. TENORMIN [Concomitant]
  8. ZOLOFT [Concomitant]

REACTIONS (4)
  - COUGH [None]
  - NASAL CONGESTION [None]
  - OEDEMA PERIPHERAL [None]
  - PHARYNGEAL OEDEMA [None]
